FAERS Safety Report 5766180-0 (Version None)
Quarter: 2008Q2

REPORT INFORMATION
  Report Type: 
  Country: None (occurrence: None)
  Receive Date: 20080609
  Receipt Date: 20080507
  Transmission Date: 20081010
  Serious: No
  Sender: FDA-Public Use
  Company Number: 002#2#2008-00364

PATIENT
  Age: 61 Year
  Sex: Female
  Weight: 40.8237 kg

DRUGS (9)
  1. NEUPRO [Suspect]
     Indication: PARKINSON'S DISEASE
     Dosage: 2MG/24H,1 IN 1 D,TRANSDERMAL ; 4MG/24H,1 IN 1 D,TRANSDERMAL
     Route: 062
     Dates: start: 20080301, end: 20080401
  2. NEUPRO [Suspect]
     Indication: PARKINSON'S DISEASE
     Dosage: 2MG/24H,1 IN 1 D,TRANSDERMAL ; 4MG/24H,1 IN 1 D,TRANSDERMAL
     Route: 062
     Dates: start: 20080301, end: 20080401
  3. EXELON [Concomitant]
  4. VITAMIN TAB [Concomitant]
  5. LIPITOR [Concomitant]
  6. AMENDA [Concomitant]
  7. SINEMET [Concomitant]
  8. CARDIA [Concomitant]
  9. ADVAIR DISKUS 100/50 [Concomitant]

REACTIONS (3)
  - ASTHENIA [None]
  - DYSKINESIA [None]
  - HALLUCINATION, VISUAL [None]
